FAERS Safety Report 6918102-4 (Version None)
Quarter: 2010Q3

REPORT INFORMATION
  Report Type: 
  Country: None (occurrence: None)
  Receive Date: 20100806
  Receipt Date: 20100730
  Transmission Date: 20110219
  Serious: Yes (Death)
  Sender: FDA-Public Use
  Company Number: 657803

PATIENT
  Age: 86 Year
  Sex: Male

DRUGS (1)
  1. PENTOSTATIN [Suspect]
     Indication: CHEMOTHERAPY
     Dosage: 10 MG MILLIGRAM(S)

REACTIONS (2)
  - FEBRILE NEUTROPENIA [None]
  - THROMBOCYTOPENIA [None]
